FAERS Safety Report 11396404 (Version 2)
Quarter: 2015Q3

REPORT INFORMATION
  Report Type: Spontaneous
  Country: US (occurrence: US)
  Receive Date: 20150819
  Receipt Date: 20150910
  Transmission Date: 20151125
  Serious: Yes (Hospitalization)
  Sender: FDA-Public Use
  Company Number: US-JNJFOC-20150723706

PATIENT
  Age: 43 Year
  Sex: Female

DRUGS (4)
  1. TAMOXIFEN [Concomitant]
     Active Substance: TAMOXIFEN
     Route: 065
     Dates: start: 2012
  2. GABAPENTIN. [Concomitant]
     Active Substance: GABAPENTIN
     Route: 065
  3. XARELTO [Suspect]
     Active Substance: RIVAROXABAN
     Indication: THROMBOSIS PROPHYLAXIS
     Dosage: DOSE: 15/20MG
     Route: 048
     Dates: start: 201309, end: 201403
  4. OXYCODONE [Concomitant]
     Active Substance: OXYCODONE
     Route: 065
     Dates: start: 2012

REACTIONS (2)
  - Haemorrhagic anaemia [Recovering/Resolving]
  - Menometrorrhagia [Recovering/Resolving]

NARRATIVE: CASE EVENT DATE: 20140121
